FAERS Safety Report 7605803-8 (Version None)
Quarter: 2011Q3

REPORT INFORMATION
  Report Type: 
  Country: None (occurrence: None)
  Receive Date: 20110712
  Receipt Date: 20110712
  Transmission Date: 20111222
  Serious: Yes (Life-Threatening, Hospitalization)
  Sender: FDA-Public Use
  Company Number: None

PATIENT
  Age: 62 Year
  Sex: Female
  Weight: 98.8842 kg

DRUGS (1)
  1. ALLOPURINAL ALLOPURINOL [Suspect]
     Indication: GOUT
     Dosage: 100MG EVERY DAY INJ
     Dates: start: 20110429, end: 20110704

REACTIONS (1)
  - STEVENS-JOHNSON SYNDROME [None]
